FAERS Safety Report 22172145 (Version 2)
Quarter: 2023Q2

REPORT INFORMATION
  Report Type: Report from Study
  Country: US (occurrence: US)
  Receive Date: 20230404
  Receipt Date: 20230412
  Transmission Date: 20230721
  Serious: Yes (Hospitalization)
  Sender: FDA-Public Use
  Company Number: US-TAKEDA-2022TUS080056

PATIENT
  Sex: Female

DRUGS (2)
  1. MARIBAVIR [Suspect]
     Active Substance: MARIBAVIR
     Indication: Cytomegalovirus infection
     Dosage: 400 MILLIGRAM, BID
     Route: 048
     Dates: start: 20221025, end: 20230329
  2. MARIBAVIR [Suspect]
     Active Substance: MARIBAVIR
     Indication: Post procedural infection

REACTIONS (5)
  - White blood cell count increased [Unknown]
  - Cytomegalovirus test positive [Unknown]
  - Colitis [Unknown]
  - Fatigue [Unknown]
  - Taste disorder [Recovering/Resolving]
